FAERS Safety Report 5734856-7 (Version None)
Quarter: 2008Q2

REPORT INFORMATION
  Report Type: 
  Country: None (occurrence: None)
  Receive Date: 20080512
  Receipt Date: 20080505
  Transmission Date: 20081010
  Serious: Yes (Hospitalization, Other)
  Sender: FDA-Public Use
  Company Number: A0715528A

PATIENT
  Age: 68 Year
  Sex: Female

DRUGS (4)
  1. LAMICTAL [Suspect]
     Indication: BIPOLAR DISORDER
     Dosage: 100MG UNKNOWN
     Route: 048
     Dates: end: 20080229
  2. LEVOXYL [Suspect]
     Indication: HYPOTHYROIDISM
     Dosage: 75MG PER DAY
     Route: 048
  3. HYDROCODONE BITARTRATE [Concomitant]
     Indication: ARTHRITIS
  4. TOBRADEX [Concomitant]
     Indication: CONJUNCTIVITIS
     Route: 047

REACTIONS (4)
  - GINGIVAL PAIN [None]
  - LIP SWELLING [None]
  - RASH [None]
  - SWELLING FACE [None]
